FAERS Safety Report 5333184-1 (Version None)
Quarter: 2007Q2

REPORT INFORMATION
  Report Type: 
  Country: None (occurrence: None)
  Receive Date: 20070521
  Receipt Date: 20070521
  Transmission Date: 20071010
  Serious: Yes (Hospitalization)
  Sender: FDA-Public Use
  Company Number: None

PATIENT
  Sex: Male
  Weight: 98.8842 kg

DRUGS (1)
  1. RITUXIMAB 935 MG [Suspect]
     Indication: CHRONIC LYMPHOCYTIC LEUKAEMIA
     Dosage: 935 MG ONCE IV
     Route: 042
     Dates: start: 20070314, end: 20070314

REACTIONS (5)
  - BACK PAIN [None]
  - HYPOTENSION [None]
  - PRURITUS [None]
  - SYNCOPE [None]
  - TACHYCARDIA [None]
